FAERS Safety Report 8130862 (Version 12)
Quarter: 2013Q4

REPORT INFORMATION
  Report Type: Spontaneous
  Country: US (occurrence: US)
  Receive Date: 20110912
  Receipt Date: 20131018
  Transmission Date: 20140711
  Serious: Yes (Hospitalization, Other)
  Sender: FDA-Public Use
  Company Number: US-ROCHE-801112

PATIENT
  Sex: Male
  Weight: 59.02 kg

DRUGS (2)
  1. ACCUTANE [Suspect]
     Indication: ACNE
     Route: 065
     Dates: start: 19980422, end: 19980826
  2. ACCUTANE [Suspect]
     Route: 065
     Dates: start: 19990505, end: 19991117

REACTIONS (6)
  - Colitis ulcerative [Unknown]
  - Inflammatory bowel disease [Unknown]
  - Leukoencephalopathy [Unknown]
  - Depression [Not Recovered/Not Resolved]
  - Injury [Unknown]
  - Suicidal ideation [Unknown]
